FAERS Safety Report 12610220 (Version 1)
Quarter: 2016Q3

REPORT INFORMATION
  Report Type: Spontaneous
  Country: IT (occurrence: IT)
  Receive Date: 20160801
  Receipt Date: 20160801
  Transmission Date: 20161109
  Serious: Yes (Other)
  Sender: FDA-Public Use
  Company Number: IT-MYLANLABS-2016M1030931

PATIENT

DRUGS (1)
  1. MEMANTINE MYLAN 20 MG FILM-COATED TABLETS [Suspect]
     Active Substance: MEMANTINE
     Indication: SENILE DEMENTIA
     Dosage: 20 MG, QD
     Route: 048
     Dates: start: 20151116, end: 20151216

REACTIONS (4)
  - Confusional state [Unknown]
  - Condition aggravated [Unknown]
  - Senile dementia [Unknown]
  - Therapeutic response decreased [Unknown]

NARRATIVE: CASE EVENT DATE: 20151216
